FAERS Safety Report 5405117-0 (Version None)
Quarter: 2007Q3

REPORT INFORMATION
  Report Type: 
  Country: None (occurrence: None)
  Receive Date: 20070803
  Receipt Date: 20070720
  Transmission Date: 20080115
  Serious: Yes (Hospitalization)
  Sender: FDA-Public Use
  Company Number: US-SHR-US-2007-027095

PATIENT
  Age: 62 Year
  Sex: Female
  Weight: 90.703 kg

DRUGS (7)
  1. BETASERON [Suspect]
     Indication: PRIMARY PROGRESSIVE MULTIPLE SCLEROSIS
     Dosage: 8 MIU, UNK
     Route: 058
     Dates: end: 20051120
  2. THYROID TAB [Concomitant]
     Dosage: 90 MG, UNK
  3. ALLEGRA [Concomitant]
     Dosage: UNK, AS REQ'D
  4. REBIF [Concomitant]
     Dosage: 44 A?G, 3X/WEEK
     Route: 058
     Dates: start: 20060801
  5. LEXAPRO [Concomitant]
     Dosage: 20 MG, UNK
  6. LYRIDA [Concomitant]
     Dosage: 50 MG, 2X/DAY
  7. ESTERDIL [Concomitant]
     Dosage: 1 MG, 1X/DAY

REACTIONS (11)
  - ABASIA [None]
  - ARTHRALGIA [None]
  - CONFUSIONAL STATE [None]
  - ENDOCARDITIS STAPHYLOCOCCAL [None]
  - FATIGUE [None]
  - NEUROPATHY PERIPHERAL [None]
  - ORAL INTAKE REDUCED [None]
  - PNEUMONIA STAPHYLOCOCCAL [None]
  - STAPHYLOCOCCAL SEPSIS [None]
  - STRESS [None]
  - WEIGHT DECREASED [None]
